FAERS Safety Report 5842549-0 (Version None)
Quarter: 2008Q3

REPORT INFORMATION
  Report Type: 
  Country: None (occurrence: None)
  Receive Date: 20080812
  Receipt Date: 20080731
  Transmission Date: 20090109
  Serious: Yes (Death)
  Sender: FDA-Public Use
  Company Number: JP-PFIZER INC-2008060394

PATIENT
  Age: 73 Year
  Sex: Male
  Weight: 64 kg

DRUGS (7)
  1. VFEND [Suspect]
     Indication: LUNG NEOPLASM MALIGNANT
     Dosage: DAILY DOSE:10MG/KG
     Route: 042
     Dates: start: 20080121, end: 20080121
  2. VFEND [Suspect]
     Route: 042
     Dates: start: 20080122, end: 20080128
  3. ASPIRIN [Concomitant]
     Route: 048
  4. FAMOTIDINE [Concomitant]
     Route: 048
  5. MICAFUNGIN [Concomitant]
     Route: 042
  6. FINIBAX [Concomitant]
     Route: 042
  7. MODACIN [Concomitant]
     Route: 042

REACTIONS (1)
  - LUNG NEOPLASM MALIGNANT [None]
